FAERS Safety Report 19700385 (Version 1)
Quarter: 2021Q3

REPORT INFORMATION
  Report Type: Spontaneous
  Country: CA (occurrence: CA)
  Receive Date: 20210813
  Receipt Date: 20210813
  Transmission Date: 20211014
  Serious: Yes (Other)
  Sender: FDA-Public Use
  Company Number: CA-PFIZER INC-2021345743

PATIENT
  Age: 74 Year
  Sex: Male

DRUGS (13)
  1. VENTOLIN [Concomitant]
     Active Substance: ALBUTEROL SULFATE
     Dosage: UNK
  2. LASIX [Concomitant]
     Active Substance: FUROSEMIDE
     Dosage: UNK
  3. METHOTREXATE SODIUM. [Suspect]
     Active Substance: METHOTREXATE SODIUM
     Indication: CROHN^S DISEASE
     Dosage: 15 MG, WEEKLY
     Route: 048
  4. SIMVASTATIN. [Concomitant]
     Active Substance: SIMVASTATIN
     Dosage: UNK
  5. INFLECTRA [Concomitant]
     Active Substance: INFLIXIMAB-DYYB
     Dosage: 700 MG, CYCLIC (EVERY 4 WEEKS)
     Route: 042
     Dates: start: 20191029
  6. REMICADE [Concomitant]
     Active Substance: INFLIXIMAB
     Indication: CROHN^S DISEASE
     Dosage: 500 MG, CYCLIC (EVERY 4 WEEKS)
     Route: 042
     Dates: end: 20191001
  7. GLICLAZIDE [Concomitant]
     Active Substance: GLICLAZIDE
     Dosage: UNK
  8. RAMIPRIL. [Concomitant]
     Active Substance: RAMIPRIL
     Dosage: UNK
  9. ALDACTONE [Concomitant]
     Active Substance: SPIRONOLACTONE
     Dosage: UNK
  10. ELIQUIS [Concomitant]
     Active Substance: APIXABAN
     Dosage: UNK
  11. INFLECTRA [Concomitant]
     Active Substance: INFLIXIMAB-DYYB
     Dosage: 700 MG, CYCLIC (EVERY 4 WEEKS)
     Route: 042
     Dates: start: 20191029
  12. METOPROLOL. [Concomitant]
     Active Substance: METOPROLOL
     Dosage: UNK
  13. INFLECTRA [Concomitant]
     Active Substance: INFLIXIMAB-DYYB
     Indication: CROHN^S DISEASE
     Dosage: 700 MG, CYCLIC (EVERY 4 WEEKS)
     Route: 042
     Dates: start: 20191029

REACTIONS (4)
  - Right ventricular failure [Unknown]
  - Oedema peripheral [Unknown]
  - Bradyarrhythmia [Unknown]
  - Off label use [Unknown]
